FAERS Safety Report 23920247 (Version 1)
Quarter: 2024Q2

REPORT INFORMATION
  Report Type: Report from Study
  Country: US (occurrence: US)
  Receive Date: 20240530
  Receipt Date: 20240530
  Transmission Date: 20240716
  Serious: Yes (Death, Hospitalization, Other)
  Sender: FDA-Public Use
  Company Number: US-JNJFOC-20240577486

PATIENT

DRUGS (3)
  1. STELARA [Suspect]
     Active Substance: USTEKINUMAB
     Indication: Crohn^s disease
     Route: 058
  2. RISANKIZUMAB [Suspect]
     Active Substance: RISANKIZUMAB
     Indication: Crohn^s disease
     Route: 065
  3. VEDOLIZUMAB [Suspect]
     Active Substance: VEDOLIZUMAB
     Indication: Crohn^s disease
     Route: 065

REACTIONS (13)
  - Death [Fatal]
  - Hospitalisation [Unknown]
  - Mycobacterial infection [Unknown]
  - Atypical mycobacterial infection [Unknown]
  - Cardiovascular disorder [Unknown]
  - Opportunistic infection [Unknown]
  - Tuberculosis [Unknown]
  - Skin infection [Unknown]
  - Emergency care [Unknown]
  - Fungal infection [Unknown]
  - Urinary tract infection [Unknown]
  - Varicella zoster virus infection [Unknown]
  - Herpes simplex [Unknown]
